FAERS Safety Report 6689471-8 (Version None)
Quarter: 2010Q2

REPORT INFORMATION
  Report Type: 
  Country: None (occurrence: None)
  Receive Date: 20100421
  Receipt Date: 20100413
  Transmission Date: 20101027
  Serious: No
  Sender: FDA-Public Use
  Company Number: US-BIOGENIDEC-2010BI007470

PATIENT
  Age: 53 Year
  Sex: Female

DRUGS (1)
  1. TYSABRI [Suspect]
     Indication: MULTIPLE SCLEROSIS
     Route: 042
     Dates: start: 20100223

REACTIONS (8)
  - CHILLS [None]
  - CONTUSION [None]
  - EXCORIATION [None]
  - FALL [None]
  - FATIGUE [None]
  - LOSS OF CONTROL OF LEGS [None]
  - PERIORBITAL HAEMATOMA [None]
  - TREMOR [None]
